FAERS Safety Report 6803281-X (Version None)
Quarter: 2010Q2

REPORT INFORMATION
  Report Type: 
  Country: None (occurrence: None)
  Receive Date: 20100628
  Receipt Date: 20100622
  Transmission Date: 20101027
  Serious: Yes (Hospitalization)
  Sender: FDA-Public Use
  Company Number: GB-SHIRE-SPV1-2010-00346

PATIENT

DRUGS (1)
  1. MEZAVANT XL [Suspect]
     Indication: DRUG USE FOR UNKNOWN INDICATION
     Dosage: 4.8 G, UNK
     Route: 065

REACTIONS (1)
  - CYTOMEGALOVIRUS TEST POSITIVE [None]
